FAERS Safety Report 24132350 (Version 1)
Quarter: 2024Q3

REPORT INFORMATION
  Report Type: Spontaneous
  Country: US (occurrence: None)
  Receive Date: 20240723
  Receipt Date: 20240723
  Transmission Date: 20241016
  Serious: No
  Sender: Public
  Company Number: None

PATIENT
  Age: 68 Year
  Sex: Female
  Weight: 70.2 kg

DRUGS (14)
  1. BRUKINSA [Suspect]
     Active Substance: ZANUBRUTINIB
     Indication: Chronic lymphocytic leukaemia
     Dosage: 80 MG TWICE A DAY ORAL ?
     Route: 048
     Dates: start: 20240702
  2. TRAZODONE [Concomitant]
     Active Substance: TRAZODONE HYDROCHLORIDE
  3. SENNA S [Concomitant]
     Active Substance: DOCUSATE SODIUM\SENNA LEAF
  4. OXYCODONE [Concomitant]
     Active Substance: OXYCODONE
  5. ONDANSETRON [Concomitant]
     Active Substance: ONDANSETRON
  6. FERROUS GLUCONATE [Concomitant]
     Active Substance: FERROUS GLUCONATE
  7. ALLOPURINOL [Concomitant]
     Active Substance: ALLOPURINOL
  8. ERGOCALCIFEROL [Concomitant]
     Active Substance: ERGOCALCIFEROL
  9. MYRBETRIQ [Concomitant]
     Active Substance: MIRABEGRON
  10. LACTULOSE [Concomitant]
     Active Substance: LACTULOSE
  11. FUROSEMIDE [Concomitant]
     Active Substance: FUROSEMIDE
  12. CYANOCOBALAMIN [Concomitant]
     Active Substance: CYANOCOBALAMIN
  13. NEUTROGENA BODY OIL [Concomitant]
     Active Substance: SESAME OIL
  14. Cerave [Concomitant]

REACTIONS (2)
  - Skin burning sensation [None]
  - Reaction to food additive [None]

NARRATIVE: CASE EVENT DATE: 20240710
